FAERS Safety Report 5300257-9 (Version None)
Quarter: 2007Q2

REPORT INFORMATION
  Report Type: 
  Country: None (occurrence: None)
  Receive Date: 20070411
  Receipt Date: 20070330
  Transmission Date: 20071010
  Serious: Yes (Other)
  Sender: FDA-Public Use
  Company Number: 154745ISR

PATIENT
  Age: 68 Year
  Sex: Female

DRUGS (1)
  1. SIMVASTATIN [Suspect]
     Indication: BLOOD CHOLESTEROL INCREASED
     Dosage: ?? ORAL
     Route: 048
     Dates: start: 20061220, end: 20070314

REACTIONS (4)
  - ALOPECIA [None]
  - ASTHENIA [None]
  - FORMICATION [None]
  - PARAESTHESIA [None]
